FAERS Safety Report 22276302 (Version 1)
Quarter: 2023Q2

REPORT INFORMATION
  Report Type: Report from Study
  Country: US (occurrence: US)
  Receive Date: 20230502
  Receipt Date: 20230502
  Transmission Date: 20230722
  Serious: Yes (Hospitalization, Other)
  Sender: FDA-Public Use
  Company Number: US-ABBVIE-4747731

PATIENT
  Sex: Female

DRUGS (1)
  1. HUMIRA [Suspect]
     Active Substance: ADALIMUMAB
     Indication: Rheumatoid arthritis
     Route: 058
     Dates: start: 20211120

REACTIONS (12)
  - Dysarthria [Unknown]
  - Dementia Alzheimer^s type [Unknown]
  - Blood pressure abnormal [Unknown]
  - Pyrexia [Not Recovered/Not Resolved]
  - Muscular weakness [Not Recovered/Not Resolved]
  - Cerebral haemorrhage [Unknown]
  - Migraine [Unknown]
  - Transient ischaemic attack [Unknown]
  - Laboratory test abnormal [Unknown]
  - Cerebrovascular accident [Unknown]
  - Hypoaesthesia [Unknown]
  - Thought blocking [Not Recovered/Not Resolved]
